FAERS Safety Report 16095084 (Version 4)
Quarter: 2019Q2

REPORT INFORMATION
  Report Type: Spontaneous
  Country: US (occurrence: US)
  Receive Date: 20190320
  Receipt Date: 20190510
  Transmission Date: 20190711
  Serious: Yes (Other)
  Sender: FDA-Public Use
  Company Number: US-009507513-1903USA005417

PATIENT
  Sex: Female
  Weight: 92.9 kg

DRUGS (1)
  1. IMPLANON [Suspect]
     Active Substance: ETONOGESTREL
     Indication: CONTRACEPTION
     Dosage: 1 IMPLANT
     Route: 059
     Dates: start: 2011, end: 20190503

REACTIONS (6)
  - Incorrect product administration duration [Unknown]
  - General anaesthesia [Unknown]
  - Surgery [Unknown]
  - Complication of device removal [Recovered/Resolved]
  - Complication associated with device [Recovered/Resolved]
  - Infertility [Not Recovered/Not Resolved]

NARRATIVE: CASE EVENT DATE: 2014
